FAERS Safety Report 24616865 (Version 1)
Quarter: 2024Q4

REPORT INFORMATION
  Report Type: Spontaneous
  Country: US (occurrence: US)
  Receive Date: 20241114
  Receipt Date: 20241114
  Transmission Date: 20250115
  Serious: No
  Sender: OTSUKA
  Company Number: US-OTSUKA-2024_018033

PATIENT
  Sex: Female
  Weight: 64.86 kg

DRUGS (1)
  1. NUEDEXTA [Suspect]
     Active Substance: DEXTROMETHORPHAN HYDROBROMIDE\QUINIDINE SULFATE
     Indication: Crying
     Dosage: 20/10MG, 1 DF, BID (EVERY 12 HOURS)
     Route: 048

REACTIONS (2)
  - Therapy interrupted [Unknown]
  - Product use in unapproved indication [Unknown]
